FAERS Safety Report 10491697 (Version 1)
Quarter: 2014Q4

REPORT INFORMATION
  Report Type: Spontaneous
  Country: US (occurrence: US)
  Receive Date: 20141002
  Receipt Date: 20141002
  Transmission Date: 20150528
  Serious: No
  Sender: FDA-Public Use
  Company Number: US-GLAXOSMITHKLINE-A1058064A

PATIENT
  Sex: Female

DRUGS (2)
  1. ADVAIR HFA [Suspect]
     Active Substance: FLUTICASONE PROPIONATE\SALMETEROL XINAFOATE
     Indication: ASTHMA
     Dosage: 1PUFF TWICE PER DAY
     Route: 055
     Dates: start: 2009
  2. ALBUTEROL. [Suspect]
     Active Substance: ALBUTEROL
     Indication: ASTHMA

REACTIONS (5)
  - Fatigue [Unknown]
  - Drug ineffective [Unknown]
  - Dyspnoea [Unknown]
  - Asthma [Unknown]
  - Palpitations [Unknown]
